FAERS Safety Report 6664776-5 (Version None)
Quarter: 2010Q1

REPORT INFORMATION
  Report Type: 
  Country: None (occurrence: None)
  Receive Date: 20100330
  Receipt Date: 20100319
  Transmission Date: 20100710
  Serious: Yes (Hospitalization)
  Sender: FDA-Public Use
  Company Number: 2010US001011

PATIENT
  Age: 23 Year
  Sex: Male
  Weight: 62 kg

DRUGS (3)
  1. PROGRAF [Suspect]
     Indication: RENAL TRANSPLANT
     Dosage: 40 MG, BID, ORAL
     Route: 048
     Dates: start: 20080804
  2. MYCOPHENOLATE MOFETIL [Concomitant]
  3. PREDNISONE TAB [Concomitant]

REACTIONS (6)
  - BLADDER SPASM [None]
  - COMPLICATIONS OF TRANSPLANTED KIDNEY [None]
  - HYPERSENSITIVITY [None]
  - PAIN IN EXTREMITY [None]
  - URETERIC FISTULA [None]
  - URINARY TRACT INFECTION STAPHYLOCOCCAL [None]
